FAERS Safety Report 9549895 (Version 1)
Quarter: 2013Q3

REPORT INFORMATION
  Report Type: Report from Study
  Country: US (occurrence: US)
  Receive Date: 20130924
  Receipt Date: 20130924
  Transmission Date: 20140515
  Serious: Yes (Hospitalization)
  Sender: FDA-Public Use
  Company Number: US-TEVA-433805USA

PATIENT
  Age: 58 Year
  Sex: Male

DRUGS (1)
  1. CLOZAPINE [Suspect]
     Route: 048

REACTIONS (1)
  - Abnormal behaviour [Unknown]
